FAERS Safety Report 13097187 (Version 1)
Quarter: 2017Q1

REPORT INFORMATION
  Report Type: Report from Study
  Country: CO (occurrence: CO)
  Receive Date: 20170109
  Receipt Date: 20170109
  Transmission Date: 20170428
  Serious: Yes (Death, Hospitalization)
  Sender: FDA-Public Use
  Company Number: PHHY2017CO001994

PATIENT
  Age: 58 Year
  Sex: Female

DRUGS (2)
  1. ILARIS [Suspect]
     Active Substance: CANAKINUMAB
     Indication: JUVENILE IDIOPATHIC ARTHRITIS
     Dosage: UNK, QMO
     Route: 058
     Dates: start: 20160727
  2. ILARIS [Suspect]
     Active Substance: CANAKINUMAB
     Dosage: UNK, QMO
     Route: 058
     Dates: start: 20161120, end: 20161120

REACTIONS (5)
  - Coagulopathy [Fatal]
  - Pyrexia [Fatal]
  - Thrombosis [Fatal]
  - Headache [Fatal]
  - Myalgia [Fatal]

NARRATIVE: CASE EVENT DATE: 20160727
